FAERS Safety Report 8063068-X (Version None)
Quarter: 2012Q1

REPORT INFORMATION
  Report Type: 
  Country: None (occurrence: None)
  Receive Date: 20120123
  Receipt Date: 20120116
  Transmission Date: 20120608
  Serious: Yes (Death)
  Sender: FDA-Public Use
  Company Number: GB-ROCHE-1030622

PATIENT

DRUGS (1)
  1. AVASTIN [Suspect]
     Indication: MALIGNANT MELANOMA
     Dosage: DATE OF LAST DOSE ADMINISTERED PRIOR TO EVENT WAS 06-JAN-2012, TOTAL 2 INFUSIONS RECEIVED PRIOR TO E
     Dates: start: 20111216

REACTIONS (1)
  - CARDIAC DISORDER [None]
